FAERS Safety Report 9562366 (Version 3)
Quarter: 2013Q4

REPORT INFORMATION
  Report Type: Report from Study
  Country: US (occurrence: US)
  Receive Date: 20130927
  Receipt Date: 20131011
  Transmission Date: 20140711
  Serious: Yes (Death, Hospitalization)
  Sender: FDA-Public Use
  Company Number: US-JNJFOC-20130915486

PATIENT
  Age: 79 Year
  Sex: Male
  Weight: 97 kg

DRUGS (13)
  1. ABIRATERONE ACETATE [Suspect]
     Indication: PROSTATE CANCER
     Dosage: TOTAL FOUR COURSES, COURSE FOUR STARTED 30-AUG-2013; TOTAL DOSE ADMINISTERED IN COURSE FOUR 24000 MG
     Route: 048
     Dates: start: 20130607, end: 20130922
  2. PREDNISONE [Suspect]
     Indication: PROSTATE CANCER
     Dosage: TOTAL DOSE ADMINISTERED IN COURSE FOUR 235 MG
     Route: 048
     Dates: start: 20130607, end: 20130922
  3. LOSARTAN [Concomitant]
     Route: 048
  4. ATENOLOL [Concomitant]
     Route: 048
  5. INSULIN [Concomitant]
     Dosage: 70/30 54 UNITS Q.A.M, 34 UNITS Q.H.S
     Route: 058
  6. DOCUSATE [Concomitant]
     Route: 048
  7. PERCOCET [Concomitant]
     Route: 048
  8. HYDROCODONE/ACETAMINOPHEN [Concomitant]
  9. LIPITOR [Concomitant]
  10. MORPHINE SULFATE [Concomitant]
  11. NORVASC [Concomitant]
  12. HYDROCHLOROTHIAZIDE [Concomitant]
  13. LANTUS [Concomitant]

REACTIONS (2)
  - Disease progression [Fatal]
  - Rectal haemorrhage [Unknown]
